FAERS Safety Report 15135094 (Version 2)
Quarter: 2018Q3

REPORT INFORMATION
  Report Type: Report from Study
  Country: None (occurrence: US)
  Receive Date: 20180712
  Receipt Date: 20180827
  Transmission Date: 20181010
  Serious: Yes (Hospitalization, Other)
  Sender: FDA-Public Use
  Company Number: US-ABBVIE-18K-163-2415303-00

PATIENT
  Age: 60 Year
  Sex: Male
  Weight: 113.5 kg

DRUGS (4)
  1. HUMIRA [Suspect]
     Active Substance: ADALIMUMAB
     Indication: PSORIATIC ARTHROPATHY
  2. HUMIRA [Suspect]
     Active Substance: ADALIMUMAB
     Indication: PSORIASIS
     Route: 058
  3. LEVOTHYROXINE. [Concomitant]
     Active Substance: LEVOTHYROXINE
     Indication: HYPOTHYROIDISM
  4. ALLOPURINOL. [Concomitant]
     Active Substance: ALLOPURINOL
     Indication: GOUT

REACTIONS (9)
  - Cough [Recovered/Resolved]
  - Dysphagia [Unknown]
  - Dyspnoea [Unknown]
  - Thermal burn [Unknown]
  - Retching [Recovered/Resolved]
  - Obstructive airways disorder [Recovered/Resolved]
  - Oropharyngeal blistering [Recovered/Resolved]
  - Arthritis [Not Recovered/Not Resolved]
  - Insomnia [Recovering/Resolving]

NARRATIVE: CASE EVENT DATE: 2018
